FAERS Safety Report 24584530 (Version 2)
Quarter: 2024Q4

REPORT INFORMATION
  Report Type: Spontaneous
  Country: GB (occurrence: GB)
  Receive Date: 20241106
  Receipt Date: 20241209
  Transmission Date: 20250114
  Serious: No
  Sender: PFIZER
  Company Number: GB-PFIZER INC-PV202400142234

PATIENT
  Age: 78 Year
  Sex: Female

DRUGS (1)
  1. GENOTROPIN [Suspect]
     Active Substance: SOMATROPIN
     Dosage: 5.3 DAILY

REACTIONS (3)
  - Drug dose omission by device [Recovered/Resolved]
  - Device leakage [Recovered/Resolved]
  - Device deployment issue [Recovered/Resolved]
